FAERS Safety Report 18282736 (Version 1)
Quarter: 2020Q3

REPORT INFORMATION
  Report Type: Spontaneous
  Country: US (occurrence: US)
  Receive Date: 20200917
  Receipt Date: 20200917
  Transmission Date: 20201103
  Serious: No
  Sender: FDA-Public Use
  Company Number: None

PATIENT
  Age: 63 Year
  Sex: Female
  Weight: 77.11 kg

DRUGS (1)
  1. NATURE?THROID [Suspect]
     Active Substance: THYROID, PORCINE
     Indication: HYPOTHYROIDISM
     Dosage: ?          OTHER FREQUENCY:1 PILL A DAY IN AM;?
     Route: 048
     Dates: start: 2016, end: 20200916

REACTIONS (6)
  - Cognitive disorder [None]
  - Irritability [None]
  - Weight loss poor [None]
  - Dry skin [None]
  - Fatigue [None]
  - Dry eye [None]

NARRATIVE: CASE EVENT DATE: 20200823
